FAERS Safety Report 23279582 (Version 1)
Quarter: 2023Q4

REPORT INFORMATION
  Report Type: Other
  Country: US (occurrence: US)
  Receive Date: 20231210
  Receipt Date: 20231210
  Transmission Date: 20240110
  Serious: Yes (Other)
  Sender: FDA-Public Use
  Company Number: US-Bion-012416

PATIENT
  Age: 37 Year
  Sex: Male

DRUGS (1)
  1. SEVELAMER CARBONATE [Suspect]
     Active Substance: SEVELAMER CARBONATE
     Indication: End stage renal disease

REACTIONS (2)
  - Mucosal ulceration [Unknown]
  - Haematochezia [Unknown]
